FAERS Safety Report 4633550-3 (Version None)
Quarter: 2005Q2

REPORT INFORMATION
  Report Type: 
  Country: None (occurrence: None)
  Receive Date: 20050331
  Receipt Date: 20041228
  Transmission Date: 20051028
  Serious: Yes (Other)
  Sender: FDA-Public Use
  Company Number: 200416338BCC

PATIENT
  Age: 34 Year
  Sex: Female
  Weight: 190.5108 kg

DRUGS (2)
  1. ALEVE [Suspect]
     Indication: ARTHRITIS
     Dosage: PRN ORAL
     Route: 048
     Dates: start: 20041001
  2. ALEVE [Suspect]
     Indication: MIGRAINE
     Dosage: PRN ORAL
     Route: 048
     Dates: start: 20041001

REACTIONS (4)
  - ABDOMINAL DISTENSION [None]
  - ABDOMINAL PAIN UPPER [None]
  - BLOOD URINE PRESENT [None]
  - HAEMATOCHEZIA [None]
